FAERS Safety Report 8149678-X (Version None)
Quarter: 2012Q1

REPORT INFORMATION
  Report Type: 
  Country: None (occurrence: None)
  Receive Date: 20120218
  Receipt Date: 20111117
  Transmission Date: 20120608
  Serious: No
  Sender: FDA-Public Use
  Company Number: US-ALLERGAN-1115133US

PATIENT
  Age: 56 Year
  Sex: Female

DRUGS (2)
  1. BOTOX COSMETIC [Suspect]
     Indication: SKIN WRINKLING
     Dosage: 41 UNITS, SINGLE
     Route: 030
     Dates: start: 20111104, end: 20111104
  2. BOTOX COSMETIC [Suspect]
     Dosage: UNK, UNK, SINGLE
     Dates: start: 20111104

REACTIONS (6)
  - SENSATION OF FOREIGN BODY [None]
  - FACIAL PARESIS [None]
  - DIZZINESS [None]
  - PRURITUS [None]
  - DYSPHAGIA [None]
  - CHILLS [None]
